FAERS Safety Report 7908033-5 (Version None)
Quarter: 2011Q4

REPORT INFORMATION
  Report Type: 
  Country: None (occurrence: None)
  Receive Date: 20111110
  Receipt Date: 20110502
  Transmission Date: 20120403
  Serious: Yes (Death)
  Sender: FDA-Public Use
  Company Number: US-ASTRAZENECA-2000AP02415

PATIENT
  Age: 47 Year
  Sex: Female

DRUGS (13)
  1. ZAFIRLUKAST [Concomitant]
     Indication: DYSPNOEA
  2. PROPOFOL [Suspect]
     Indication: SEDATION
     Dosage: MEAN DOSE 12
     Route: 042
  3. THEOPHYLLINE [Concomitant]
     Indication: DYSPNOEA
  4. VECURONIUM BROMIDE [Concomitant]
  5. ALBUTEROL [Concomitant]
     Indication: DYSPNOEA
  6. LIDOCAINE [Concomitant]
     Indication: VENTRICULAR EXTRASYSTOLES
  7. MIDAZOLAM [Concomitant]
  8. PROPOFOL [Suspect]
     Indication: ASTHMA
     Dosage: MEAN DOSE 12
     Route: 042
  9. CORTICOSTEROIDS [Concomitant]
  10. PREDNISONE TAB [Concomitant]
     Indication: DYSPNOEA
  11. SUCCINYLCHOLINE CHLORIDE [Concomitant]
  12. CEFTRIAXONE [Concomitant]
     Indication: CHEST X-RAY ABNORMAL
  13. IPRATROPIUM BROMIDE [Concomitant]

REACTIONS (1)
  - PROPOFOL INFUSION SYNDROME [None]
